FAERS Safety Report 5606868-5 (Version None)
Quarter: 2008Q1

REPORT INFORMATION
  Report Type: 
  Country: None (occurrence: None)
  Receive Date: 20080125
  Receipt Date: 20080114
  Transmission Date: 20080703
  Serious: Yes (Other)
  Sender: FDA-Public Use
  Company Number: 2008AP000172

PATIENT
  Age: 35 Year
  Sex: Male

DRUGS (2)
  1. FLUOXETINE HYDROCHLORIDE [Suspect]
     Indication: POST-TRAUMATIC STRESS DISORDER
     Dosage: 20 MG; QD;
  2. LORAZEPAM [Concomitant]

REACTIONS (4)
  - HYPERTENSION [None]
  - LOSS OF LIBIDO [None]
  - SLEEP APNOEA SYNDROME [None]
  - WEIGHT INCREASED [None]
